FAERS Safety Report 26058104 (Version 1)
Quarter: 2025Q4

REPORT INFORMATION
  Report Type: Report from Study
  Country: US (occurrence: US)
  Receive Date: 20251118
  Receipt Date: 20251118
  Transmission Date: 20260117
  Serious: Yes (Other)
  Sender: NOVARTIS
  Company Number: US-002147023-NVSC2024US219712

PATIENT
  Sex: Female

DRUGS (1)
  1. KESIMPTA [Suspect]
     Active Substance: OFATUMUMAB
     Indication: Product used for unknown indication
     Dosage: 20 MG/KG, QMO
     Route: 058

REACTIONS (13)
  - Pneumonia [Unknown]
  - Upper-airway cough syndrome [Unknown]
  - Chest pain [Unknown]
  - Dry throat [Unknown]
  - Productive cough [Unknown]
  - Back pain [Unknown]
  - Sinusitis [Unknown]
  - Bronchitis [Unknown]
  - Brain fog [Unknown]
  - Cognitive disorder [Unknown]
  - Hypoaesthesia [Unknown]
  - Peroneal nerve palsy [Unknown]
  - Arthritis [Unknown]
